FAERS Safety Report 9400202 (Version 1)
Quarter: 2013Q3

REPORT INFORMATION
  Report Type: Spontaneous
  Country: US (occurrence: US)
  Receive Date: 20130715
  Receipt Date: 20130715
  Transmission Date: 20140515
  Serious: Yes (Hospitalization)
  Sender: FDA-Public Use
  Company Number: US-BAYER-2013-085404

PATIENT
  Age: 23 Year
  Sex: Female

DRUGS (2)
  1. YAZ [Suspect]
  2. HYDROCODONE/ACETAMINOPHEN [Concomitant]
     Dosage: 7.5-500MG
     Dates: start: 20090611

REACTIONS (1)
  - Pulmonary embolism [None]
